FAERS Safety Report 8130296-4 (Version None)
Quarter: 2012Q1

REPORT INFORMATION
  Report Type: 
  Country: None (occurrence: None)
  Receive Date: 20120210
  Receipt Date: 20120207
  Transmission Date: 20120608
  Serious: Yes (Other)
  Sender: FDA-Public Use
  Company Number: PHEH2007US14507

PATIENT
  Sex: Male
  Weight: 74 kg

DRUGS (3)
  1. TRILEPTAL [Suspect]
     Indication: TEMPORAL LOBE EPILEPSY
     Dosage: 600 MG, TWICE DAILY
     Route: 048
  2. TRILEPTAL [Suspect]
     Dosage: 600 MG, PER DAY
     Route: 048
  3. TRILEPTAL [Suspect]
     Dosage: 1200MG DAILY
     Route: 048
     Dates: start: 20111118

REACTIONS (14)
  - ABDOMINAL PAIN [None]
  - GAIT DISTURBANCE [None]
  - VISUAL IMPAIRMENT [None]
  - TONGUE ULCERATION [None]
  - GRAND MAL CONVULSION [None]
  - MALIGNANT MELANOMA [None]
  - DIZZINESS [None]
  - SOMNOLENCE [None]
  - MOUTH ULCERATION [None]
  - DIPLOPIA [None]
  - COORDINATION ABNORMAL [None]
  - FATIGUE [None]
  - NAUSEA [None]
  - TREMOR [None]
